FAERS Safety Report 25055328 (Version 3)
Quarter: 2025Q3

REPORT INFORMATION
  Report Type: Spontaneous
  Country: EU (occurrence: EU)
  Receive Date: 20250308
  Receipt Date: 20250701
  Transmission Date: 20251021
  Serious: Yes (Life-Threatening, Hospitalization, Disabling, Other)
  Sender: ACCORD
  Company Number: EU-Accord-472755

PATIENT
  Age: 76 Year
  Sex: Male

DRUGS (5)
  1. ROSUVASTATIN CALCIUM [Interacting]
     Active Substance: ROSUVASTATIN CALCIUM
     Indication: Hypercholesterolaemia
     Dates: start: 2020, end: 202311
  2. ABIRATERONE [Interacting]
     Active Substance: ABIRATERONE
     Indication: Hormone-refractory prostate cancer
     Dates: start: 202110, end: 202311
  3. PREDNISONE [Concomitant]
     Active Substance: PREDNISONE
     Indication: Hormone-refractory prostate cancer
     Route: 048
     Dates: start: 202110
  4. ROSUVASTATIN CALCIUM [Interacting]
     Active Substance: ROSUVASTATIN CALCIUM
     Indication: Hypercholesterolaemia
  5. PREDNISONE [Concomitant]
     Active Substance: PREDNISONE
     Indication: Hormone-refractory prostate cancer
     Route: 048
     Dates: start: 202110

REACTIONS (4)
  - Hypokalaemia [Unknown]
  - Rhabdomyolysis [Recovered/Resolved]
  - Acute kidney injury [Recovering/Resolving]
  - Drug interaction [Unknown]

NARRATIVE: CASE EVENT DATE: 20230901
